FAERS Safety Report 10019908 (Version 2)
Quarter: 2014Q2

REPORT INFORMATION
  Report Type: Spontaneous
  Country: US (occurrence: US)
  Receive Date: 20140318
  Receipt Date: 20140618
  Transmission Date: 20141212
  Serious: No
  Sender: FDA-Public Use
  Company Number: US-GALDERMA-US14000547

PATIENT
  Age: 53 Year
  Sex: Female

DRUGS (5)
  1. MIRVASO (BRIMONIDINE) TOPICAL GEL, 0.33% [Suspect]
     Indication: ROSACEA
     Dosage: 0.33%
     Route: 061
     Dates: start: 201402
  2. TRAZODONE [Concomitant]
     Dosage: 25 MG
     Route: 048
  3. ZOLPIDEM [Concomitant]
     Dosage: 10 MG
     Route: 048
  4. ESCITALOPRAM [Concomitant]
     Dosage: 5 MG
     Route: 048
  5. DERMATOLOGICA SKINCARE [Concomitant]
     Route: 061

REACTIONS (9)
  - Skin injury [Recovered/Resolved]
  - Pruritus [Recovered/Resolved]
  - Skin burning sensation [Recovered/Resolved]
  - Pain of skin [Recovered/Resolved]
  - Feeling hot [Recovered/Resolved]
  - Blister [Recovered/Resolved]
  - Flushing [Recovered/Resolved]
  - Erythema [Recovered/Resolved]
  - Dermatitis [Recovered/Resolved]
